FAERS Safety Report 7734539-8 (Version None)
Quarter: 2011Q3

REPORT INFORMATION
  Report Type: 
  Country: None (occurrence: None)
  Receive Date: 20110907
  Receipt Date: 20110829
  Transmission Date: 20111222
  Serious: Yes (Other)
  Sender: FDA-Public Use
  Company Number: CA-GLAXOSMITHKLINE-A0943400A

PATIENT
  Age: 37 Year
  Sex: Female

DRUGS (4)
  1. WELLBUTRIN SR [Suspect]
     Indication: DEPRESSION
     Dosage: 150MG PER DAY
     Route: 048
     Dates: start: 20110401
  2. ESCITALOPRAM [Concomitant]
     Dosage: 20MG PER DAY
     Route: 048
     Dates: start: 20100101
  3. TRAZODONE HCL [Concomitant]
     Dosage: 50MG PER DAY
     Route: 048
     Dates: start: 20101101
  4. ATIVAN [Concomitant]
     Dosage: 1MG PER DAY
     Route: 048
     Dates: start: 20100101

REACTIONS (1)
  - ERYTHEMA NODOSUM [None]
